FAERS Safety Report 7015249-1 (Version None)
Quarter: 2010Q3

REPORT INFORMATION
  Report Type: 
  Country: None (occurrence: None)
  Receive Date: 20100927
  Receipt Date: 20100920
  Transmission Date: 20110219
  Serious: Yes (Hospitalization)
  Sender: FDA-Public Use
  Company Number: CA-ELI_LILLY_AND_COMPANY-CA201007006704

PATIENT
  Sex: Male
  Weight: 113.5 kg

DRUGS (8)
  1. NECITUMUMAB (11F8) (LY3012211) [Suspect]
     Indication: NON-SMALL CELL LUNG CANCER
     Dosage: 893 MG, OTHER
     Route: 042
     Dates: start: 20100608
  2. NECITUMUMAB (11F8) (LY3012211) [Suspect]
     Dosage: 600 MG, OTHER
  3. PEMETREXED [Suspect]
     Indication: NON-SMALL CELL LUNG CANCER
     Dosage: 133 MG, OTHER
     Route: 042
     Dates: start: 20100608
  4. CISPLATIN [Suspect]
     Indication: NON-SMALL CELL LUNG CANCER
     Dosage: 600 MG, OTHER
     Route: 042
     Dates: start: 20100608
  5. ASPIRIN [Concomitant]
     Dosage: 80 MG, UNK
     Dates: start: 20050626
  6. IBUPROFEN [Concomitant]
     Dosage: 600 MG, UNK
     Dates: start: 20100101
  7. IBUPROFEN [Concomitant]
     Dosage: UNK, AS NEEDED
  8. DECADRON [Concomitant]
     Dosage: 4 MG, UNK
     Dates: start: 20100608, end: 20100716

REACTIONS (2)
  - DUODENAL ULCER HAEMORRHAGE [None]
  - OESOPHAGEAL ULCER [None]
